FAERS Safety Report 22120483 (Version 2)
Quarter: 2023Q1

REPORT INFORMATION
  Report Type: Spontaneous
  Country: VN (occurrence: VN)
  Receive Date: 20230321
  Receipt Date: 20230329
  Transmission Date: 20230417
  Serious: Yes (Death, Other)
  Sender: FDA-Public Use
  Company Number: VN-TAKEDA-2023TUS028194

PATIENT
  Age: 75 Year
  Sex: Male

DRUGS (1)
  1. FLEXBUMIN [Suspect]
     Active Substance: ALBUMIN HUMAN
     Indication: Product used for unknown indication
     Dosage: UNK
     Route: 065

REACTIONS (2)
  - Hepatic cirrhosis [Fatal]
  - Product availability issue [Unknown]

NARRATIVE: CASE EVENT DATE: 20230315
